FAERS Safety Report 12436630 (Version 1)
Quarter: 2016Q2

REPORT INFORMATION
  Report Type: Spontaneous
  Country: US (occurrence: None)
  Receive Date: 20160603
  Receipt Date: 20160603
  Transmission Date: 20160815
  Serious: Yes (Death)
  Sender: FDA-Public Use
  Company Number: None

PATIENT
  Age: 73 Year
  Sex: Female
  Weight: 45.36 kg

DRUGS (25)
  1. BONIVA [Concomitant]
     Active Substance: IBANDRONATE SODIUM
  2. AMBIEN [Concomitant]
     Active Substance: ZOLPIDEM TARTRATE
  3. PROTONIX [Concomitant]
     Active Substance: PANTOPRAZOLE SODIUM
  4. ADVAIR HFA [Concomitant]
     Active Substance: FLUTICASONE PROPIONATE\SALMETEROL XINAFOATE
  5. COZAAR [Concomitant]
     Active Substance: LOSARTAN POTASSIUM
  6. FISH OIL [Concomitant]
     Active Substance: FISH OIL
  7. TYLENOL [Concomitant]
     Active Substance: ACETAMINOPHEN
  8. VOLTAREN [Concomitant]
     Active Substance: DICLOFENAC SODIUM
  9. LASIX [Suspect]
     Active Substance: FUROSEMIDE
  10. LEXAPRO [Concomitant]
     Active Substance: ESCITALOPRAM OXALATE
  11. CLARITN [Concomitant]
  12. ATIVAN [Concomitant]
     Active Substance: LORAZEPAM
  13. CIPRO [Concomitant]
     Active Substance: CIPROFLOXACIN HYDROCHLORIDE
  14. LIPITOR [Concomitant]
     Active Substance: ATORVASTATIN CALCIUM
  15. PRADAXA [Concomitant]
     Active Substance: DABIGATRAN ETEXILATE MESYLATE
  16. PHENERGAN [Concomitant]
     Active Substance: PROMETHAZINE HYDROCHLORIDE
  17. NEURONTIN [Concomitant]
     Active Substance: GABAPENTIN
  18. BIOTIN VIT OK TRICOR [Concomitant]
  19. PLAVIX [Concomitant]
     Active Substance: CLOPIDOGREL BISULFATE
  20. PRADAXA [Suspect]
     Active Substance: DABIGATRAN ETEXILATE MESYLATE
     Indication: THROMBOSIS PROPHYLAXIS
     Route: 048
  21. COREG [Concomitant]
     Active Substance: CARVEDILOL
  22. TRAMADOL. [Concomitant]
     Active Substance: TRAMADOL
  23. GLUCOSAMINE FLONASE [Concomitant]
  24. PRADAXA [Suspect]
     Active Substance: DABIGATRAN ETEXILATE MESYLATE
     Indication: ATRIAL FIBRILLATION
     Route: 048
  25. NASONEX [Concomitant]
     Active Substance: MOMETASONE FUROATE

REACTIONS (3)
  - Fall [None]
  - Subdural haematoma [None]
  - Head injury [None]

NARRATIVE: CASE EVENT DATE: 20160513
